FAERS Safety Report 7732503-6 (Version None)
Quarter: 2011Q3

REPORT INFORMATION
  Report Type: 
  Country: None (occurrence: None)
  Receive Date: 20110906
  Receipt Date: 20110826
  Transmission Date: 20111222
  Serious: Yes (Hospitalization, Other)
  Sender: FDA-Public Use
  Company Number: US-ASTRAZENECA-2011SE40554

PATIENT
  Age: 54 Year
  Sex: Female

DRUGS (2)
  1. NEXIUM [Suspect]
     Route: 048
  2. SEROQUEL [Suspect]
     Route: 048

REACTIONS (4)
  - MUSCLE RUPTURE [None]
  - UPPER LIMB FRACTURE [None]
  - ROTATOR CUFF SYNDROME [None]
  - FALL [None]
